FAERS Safety Report 5214469-6 (Version None)
Quarter: 2006Q4

REPORT INFORMATION
  Report Type: 
  Country: None (occurrence: None)
  Receive Date: 20061107
  Receipt Date: 20060726
  Transmission Date: 20070319
  Serious: No
  Sender: FDA-Public Use
  Company Number: 200614785BWH

PATIENT
  Age: 84 Year
  Sex: Male

DRUGS (6)
  1. LEVITRA [Suspect]
     Indication: ERECTILE DYSFUNCTION
     Dosage: 5 MG, ONCE, ORAL; 10MG, ONCE, ORAL
     Route: 048
     Dates: start: 20060617
  2. LEVITRA [Suspect]
     Indication: ERECTILE DYSFUNCTION
     Dosage: 5 MG, ONCE, ORAL; 10MG, ONCE, ORAL
     Route: 048
     Dates: start: 20060620
  3. LEVITRA [Suspect]
     Indication: ERECTILE DYSFUNCTION
     Dosage: 5 MG, ONCE, ORAL; 10MG, ONCE, ORAL
     Route: 048
     Dates: start: 20060627
  4. AVANDIA [Concomitant]
  5. GLIPZIDE [Concomitant]
  6. ZOCOR [Concomitant]

REACTIONS (1)
  - ERECTILE DYSFUNCTION [None]
